FAERS Safety Report 5311111-0 (Version None)
Quarter: 2007Q2

REPORT INFORMATION
  Report Type: 
  Country: None (occurrence: None)
  Receive Date: 20070430
  Receipt Date: 20070312
  Transmission Date: 20071010
  Serious: Yes (Other)
  Sender: FDA-Public Use
  Company Number: US-SANOFI-SYNTHELABO-A03200702302

PATIENT
  Sex: Female

DRUGS (8)
  1. REMERON [Concomitant]
     Indication: DRUG USE FOR UNKNOWN INDICATION
  2. DHEA [Concomitant]
     Indication: DRUG USE FOR UNKNOWN INDICATION
  3. ESTROGENS SOL/INJ [Concomitant]
     Indication: DRUG USE FOR UNKNOWN INDICATION
     Dosage: UNK
     Route: 065
  4. SYNTHROID [Concomitant]
     Indication: DRUG USE FOR UNKNOWN INDICATION
     Dosage: UNK
     Route: 065
  5. EFFEXOR [Concomitant]
     Indication: DRUG USE FOR UNKNOWN INDICATION
     Dosage: UNK
     Route: 065
  6. TRAZODONE HCL [Concomitant]
     Indication: DRUG USE FOR UNKNOWN INDICATION
     Dosage: UNK
     Route: 065
  7. WELLBUTRIN [Concomitant]
     Indication: DRUG USE FOR UNKNOWN INDICATION
     Dosage: UNK
     Route: 065
  8. AMBIEN [Suspect]
     Indication: INSOMNIA
     Dosage: 1 TABLET UNK
     Route: 048
     Dates: start: 20020101, end: 20030101

REACTIONS (7)
  - ABNORMAL BEHAVIOUR [None]
  - AMNESIA [None]
  - PAIN [None]
  - SEXUAL ASSAULT VICTIM [None]
  - SLEEP TALKING [None]
  - SLEEP WALKING [None]
  - VAGINAL DISORDER [None]
